FAERS Safety Report 4269105-2 (Version None)
Quarter: 2004Q1

REPORT INFORMATION
  Report Type: 
  Country: None (occurrence: None)
  Receive Date: 20040109
  Receipt Date: 20030729
  Transmission Date: 20041129
  Serious: Yes (Other)
  Sender: FDA-Public Use
  Company Number: 200410045BCC

PATIENT
  Age: 82 Year
  Sex: Female
  Weight: 58.9676 kg

DRUGS (2)
  1. BAYER MUSCLE + JOINT CREAM (CAMPHOR/ EUCALYPTUS/ MENTHOL/ METHYL SALIC [Suspect]
     Dosage: NI, UNK, TOPICAL
     Route: 061
     Dates: start: 20030728
  2. UNKNOWN HEART MEDICATIONS [Concomitant]

REACTIONS (2)
  - ACCIDENTAL EXPOSURE [None]
  - ASTHMA [None]
